FAERS Safety Report 19506362 (Version 1)
Quarter: 2021Q3

REPORT INFORMATION
  Report Type: Spontaneous
  Country: US (occurrence: US)
  Receive Date: 20210708
  Receipt Date: 20210708
  Transmission Date: 20211014
  Serious: No
  Sender: FDA-Public Use
  Company Number: None

PATIENT
  Age: 72 Year
  Sex: Male

DRUGS (1)
  1. GILTERITINIB (GILTERITINIB 40MG TAB) [Suspect]
     Active Substance: GILTERITINIB
     Dates: start: 20200805

REACTIONS (3)
  - Cardiac tamponade [None]
  - Pericardial effusion [None]
  - Pericarditis [None]

NARRATIVE: CASE EVENT DATE: 20210509
